FAERS Safety Report 9533569 (Version 1)
Quarter: 2013Q3

REPORT INFORMATION
  Report Type: Spontaneous
  Country: US (occurrence: US)
  Receive Date: 20130918
  Receipt Date: 20130918
  Transmission Date: 20140515
  Serious: No
  Sender: FDA-Public Use
  Company Number: US-PURDUE-USA-2011-0078547

PATIENT
  Sex: Female

DRUGS (1)
  1. BUTRANS [Suspect]
     Indication: PAIN
     Dosage: 5 MCG/HR, UNK
     Route: 062
     Dates: start: 20111102, end: 20111107

REACTIONS (3)
  - Swollen tongue [Recovered/Resolved]
  - Gait disturbance [Recovered/Resolved]
  - Pruritus generalised [Recovered/Resolved]
